FAERS Safety Report 8314654-0 (Version None)
Quarter: 2012Q2

REPORT INFORMATION
  Report Type: 
  Country: None (occurrence: None)
  Receive Date: 20120426
  Receipt Date: 20110808
  Transmission Date: 20120825
  Serious: Yes (Other)
  Sender: FDA-Public Use
  Company Number: US-TEVA-US024342

PATIENT
  Sex: Female

DRUGS (3)
  1. PROVIGIL [Suspect]
     Dosage: 100 MILLIGRAM;
     Route: 048
     Dates: start: 20080801
  2. PROVIGIL [Suspect]
     Indication: FATIGUE
     Dosage: 200 MILLIGRAM;
     Route: 048
     Dates: start: 20040101, end: 20080801
  3. STEROIDS [Concomitant]
     Route: 065

REACTIONS (8)
  - SWOLLEN TONGUE [None]
  - SUICIDAL IDEATION [None]
  - DYSPNOEA [None]
  - RASH GENERALISED [None]
  - ANXIETY [None]
  - DYSPHONIA [None]
  - FEELING ABNORMAL [None]
  - CHEST PAIN [None]
